FAERS Safety Report 11866003 (Version 3)
Quarter: 2016Q3

REPORT INFORMATION
  Report Type: Spontaneous
  Country: IT (occurrence: IT)
  Receive Date: 20151223
  Receipt Date: 20160725
  Transmission Date: 20161109
  Serious: Yes (Hospitalization, Other)
  Sender: FDA-Public Use
  Company Number: PHHY2015IT164091

PATIENT
  Age: 90 Year
  Sex: Male

DRUGS (1)
  1. AMIODARONE SANDOZ [Suspect]
     Active Substance: AMIODARONE
     Indication: PRODUCT USED FOR UNKNOWN INDICATION
     Dosage: 1 DF, QD
     Route: 048
     Dates: start: 20150922, end: 20151129

REACTIONS (11)
  - Cardiac murmur [Unknown]
  - Crepitations [Unknown]
  - Cardiac failure [Unknown]
  - Pleural effusion [Unknown]
  - Hypokinesia [Unknown]
  - Bronchiectasis [Unknown]
  - Pneumonia [Unknown]
  - Interstitial lung disease [Not Recovered/Not Resolved]
  - Dyspnoea [Unknown]
  - Tachypnoea [Unknown]
  - Cough [Unknown]

NARRATIVE: CASE EVENT DATE: 20151129
